FAERS Safety Report 4714634-8 (Version None)
Quarter: 2005Q3

REPORT INFORMATION
  Report Type: 
  Country: None (occurrence: None)
  Receive Date: 20050714
  Receipt Date: 20050714
  Transmission Date: 20060218
  Serious: Yes (Hospitalization)
  Sender: FDA-Public Use
  Company Number: None

PATIENT
  Sex: Male

DRUGS (5)
  1. CLOPIDOGREL 75 MG [Suspect]
     Indication: CEREBROVASCULAR ACCIDENT
     Dosage: 75 MG DAILY ORAL
     Route: 048
  2. FELODIPINE [Concomitant]
  3. OXYCODONE HCL [Concomitant]
  4. PROCHLORPERAZINE [Concomitant]
  5. MULTIVITIAMIN WITH MINERALS [Concomitant]

REACTIONS (2)
  - FAECES DISCOLOURED [None]
  - HAEMOGLOBIN DECREASED [None]
